FAERS Safety Report 23600876 (Version 1)
Quarter: 2024Q1

REPORT INFORMATION
  Report Type: Spontaneous
  Country: US (occurrence: None)
  Receive Date: 20240305
  Receipt Date: 20240305
  Transmission Date: 20240409
  Serious: Yes (Other)
  Sender: FDA-Public Use
  Company Number: None

PATIENT
  Age: 25 Year
  Sex: Male
  Weight: 99 kg

DRUGS (4)
  1. GUANFACINE [Suspect]
     Active Substance: GUANFACINE
     Indication: Attention deficit hyperactivity disorder
     Dosage: FREQUENCY : DAILY;?
     Route: 048
  2. GUANFACINE [Suspect]
     Active Substance: GUANFACINE
     Indication: Bipolar disorder
  3. LURASIDONE [Concomitant]
     Active Substance: LURASIDONE
     Dates: start: 20230609
  4. ESCITALOPRAM [Concomitant]
     Active Substance: ESCITALOPRAM OXALATE
     Dates: start: 20220714

REACTIONS (3)
  - Nausea [None]
  - Vomiting [None]
  - Drug intolerance [None]

NARRATIVE: CASE EVENT DATE: 20240215
